FAERS Safety Report 18725600 (Version 1)
Quarter: 2021Q1

REPORT INFORMATION
  Report Type: Spontaneous
  Country: BR (occurrence: BR)
  Receive Date: 20210111
  Receipt Date: 20210111
  Transmission Date: 20210419
  Serious: Yes (Other)
  Sender: FDA-Public Use
  Company Number: BR-MYLANLABS-2021M1000589

PATIENT
  Sex: Male

DRUGS (4)
  1. CYTARABINE. [Suspect]
     Active Substance: CYTARABINE
     Indication: HODGKIN^S DISEASE NODULAR SCLEROSIS STAGE III
     Dosage: 200 MILLIGRAM/SQ. METER, ON DAY 5 TO DAY 2
     Route: 065
  2. LOMUSTINE. [Suspect]
     Active Substance: LOMUSTINE
     Indication: HODGKIN^S DISEASE NODULAR SCLEROSIS STAGE III
     Dosage: 200 MILLIGRAM/SQ. METER, ON DAY 6
     Route: 065
  3. ETOPOSIDE. [Suspect]
     Active Substance: ETOPOSIDE
     Indication: HODGKIN^S DISEASE NODULAR SCLEROSIS STAGE III
     Dosage: 200 MILLIGRAM/SQ. METER, ON DAY 5 TO DAY 2
     Route: 065
  4. MELPHALAN. [Suspect]
     Active Substance: MELPHALAN
     Indication: HODGKIN^S DISEASE NODULAR SCLEROSIS STAGE III
     Dosage: 140 MILLIGRAM/SQ. METER, ON DAY 1
     Route: 065

REACTIONS (7)
  - Anaemia [Unknown]
  - Mucosal inflammation [Unknown]
  - Alanine aminotransferase increased [Unknown]
  - Thrombocytopenia [Recovering/Resolving]
  - Febrile neutropenia [Unknown]
  - Neutropenia [Recovering/Resolving]
  - Aspartate aminotransferase increased [Unknown]
